FAERS Safety Report 17376762 (Version 1)
Quarter: 2020Q1

REPORT INFORMATION
  Report Type: Report from Study
  Country: AR (occurrence: AR)
  Receive Date: 20200206
  Receipt Date: 20200206
  Transmission Date: 20200409
  Serious: Yes (Death, Other)
  Sender: FDA-Public Use
  Company Number: AR-BRISTOL-MYERS SQUIBB COMPANY-BMS-2020-008873

PATIENT
  Age: 87 Year
  Sex: Female

DRUGS (1)
  1. APIXABAN [Suspect]
     Active Substance: APIXABAN
     Indication: PRODUCT USED FOR UNKNOWN INDICATION
     Dosage: 5 MILLIGRAM
     Route: 065
     Dates: start: 20190929

REACTIONS (6)
  - Cardiac failure [Fatal]
  - Hip fracture [Unknown]
  - Movement disorder [Unknown]
  - Renal failure [Fatal]
  - Pain [Unknown]
  - Dehydration [Fatal]

NARRATIVE: CASE EVENT DATE: 201911
